FAERS Safety Report 16765702 (Version 4)
Quarter: 2021Q1

REPORT INFORMATION
  Report Type: Spontaneous
  Country: JP (occurrence: JP)
  Receive Date: 20190903
  Receipt Date: 20210122
  Transmission Date: 20210419
  Serious: Yes (Disabling, Other)
  Sender: FDA-Public Use
  Company Number: JP-009507513-1908JPN002749J

PATIENT
  Age: 69 Year
  Sex: Female
  Weight: 42 kg

DRUGS (6)
  1. KEYTRUDA [Suspect]
     Active Substance: PEMBROLIZUMAB
     Indication: NON-SMALL CELL LUNG CANCER
     Dosage: 200 MILLIGRAM, EVERY 4 WEEKS
     Route: 041
     Dates: start: 20190424
  2. PEMETREXED DISODIUM [Concomitant]
     Active Substance: PEMETREXED DISODIUM
     Indication: NON-SMALL CELL LUNG CANCER
     Dosage: UNK UNK, Q3W
     Route: 041
     Dates: start: 20190402, end: 20191225
  3. PANVITAN [Concomitant]
     Active Substance: VITAMINS
     Indication: CHEMOTHERAPY SIDE EFFECT PROPHYLAXIS
     Dosage: 1 GRAM, QD
     Route: 048
     Dates: start: 20190325
  4. TRAZENTA [Concomitant]
     Active Substance: LINAGLIPTIN
     Indication: DIABETES MELLITUS
     Dosage: 5 MILLIGRAM, QD
     Route: 048
     Dates: start: 20190424
  5. CARBOPLATIN. [Concomitant]
     Active Substance: CARBOPLATIN
     Indication: NON-SMALL CELL LUNG CANCER
     Dosage: UNK UNK, Q3W
     Route: 041
     Dates: start: 20190402, end: 20190605
  6. NIFEDIPINE. [Concomitant]
     Active Substance: NIFEDIPINE
     Indication: HYPERTENSION
     Dosage: 40 MILLIGRAM, QD
     Route: 048
     Dates: start: 20190207

REACTIONS (2)
  - Off label use [Unknown]
  - Herpes ophthalmic [Recovering/Resolving]

NARRATIVE: CASE EVENT DATE: 2019
